FAERS Safety Report 8761923 (Version 1)
Quarter: 2012Q4

REPORT INFORMATION
  Report Type: 
  Country: US (occurrence: US)
  Receive Date: 20120830
  Receipt Date: 20120830
  Transmission Date: 20130627
  Serious: No
  Sender: FDA-Public Use
  Company Number: US-ASTRAZENECA-2012SE61223

PATIENT
  Age: 62 Year
  Sex: Female

DRUGS (1)
  1. NEXIUM [Suspect]
     Route: 065

REACTIONS (5)
  - Gastrooesophageal reflux disease [Unknown]
  - Burning sensation [Unknown]
  - Malaise [Unknown]
  - Intentional drug misuse [Unknown]
  - Drug dose omission [Unknown]
